FAERS Safety Report 17000631 (Version 4)
Quarter: 2019Q4

REPORT INFORMATION
  Report Type: Spontaneous
  Country: DE (occurrence: DE)
  Receive Date: 20191106
  Receipt Date: 20191211
  Transmission Date: 20200122
  Serious: Yes (Other)
  Sender: FDA-Public Use
  Company Number: NVSC2019DE026091

PATIENT
  Sex: Female

DRUGS (2)
  1. QUETIAPIN HEXAL 100 MG FILMTABLETTEN [Suspect]
     Active Substance: QUETIAPINE FUMARATE
     Dosage: 100 MG, QHS
     Route: 065
     Dates: start: 201910, end: 201910
  2. QUETIAPIN HEXAL 100 MG FILMTABLETTEN [Suspect]
     Active Substance: QUETIAPINE FUMARATE
     Indication: PSYCHOTIC DISORDER
     Dosage: 100 MG, QD
     Route: 065
     Dates: start: 201201, end: 201910

REACTIONS (4)
  - Manufacturing issue [Unknown]
  - Insomnia [Recovered/Resolved]
  - Withdrawal syndrome [Recovered/Resolved]
  - Drug ineffective [Recovered/Resolved]

NARRATIVE: CASE EVENT DATE: 20191012
